FAERS Safety Report 19274609 (Version 2)
Quarter: 2021Q2

REPORT INFORMATION
  Report Type: Spontaneous
  Country: GB (occurrence: GB)
  Receive Date: 20210519
  Receipt Date: 20210605
  Transmission Date: 20210717
  Serious: Yes (Other)
  Sender: FDA-Public Use
  Company Number: GB-ACCORD-226044

PATIENT
  Age: 47 Year
  Sex: Female
  Weight: 98 kg

DRUGS (1)
  1. OXYBUTYNIN/OXYBUTYNIN HYDROCHLORIDE [Suspect]
     Active Substance: OXYBUTYNIN
     Indication: BLADDER SPASM
     Dosage: 5MG X 3 PER DAY
     Route: 048
     Dates: start: 20201101, end: 20210301

REACTIONS (2)
  - Paraesthesia oral [Recovered/Resolved]
  - Swelling face [Recovered/Resolved]

NARRATIVE: CASE EVENT DATE: 20210115
